FAERS Safety Report 11853130 (Version 5)
Quarter: 2016Q1

REPORT INFORMATION
  Report Type: Report from Study
  Country: JP (occurrence: JP)
  Receive Date: 20151218
  Receipt Date: 20160303
  Transmission Date: 20160526
  Serious: Yes (Hospitalization, Other)
  Sender: FDA-Public Use
  Company Number: JP-ASTRAZENECA-2015SF24797

PATIENT
  Age: 29209 Day
  Sex: Male
  Weight: 71 kg

DRUGS (9)
  1. LOXONIN [Suspect]
     Active Substance: LOXOPROFEN SODIUM
     Indication: RHEUMATOID ARTHRITIS
     Route: 048
     Dates: start: 200701
  2. MYSLEE [Concomitant]
     Active Substance: ZOLPIDEM TARTRATE
     Route: 048
     Dates: start: 20110504
  3. MUCOSTA [Concomitant]
     Active Substance: REBAMIPIDE
     Dosage: AFTER EVERY MEAL
     Route: 048
     Dates: start: 20110504
  4. URSO [Concomitant]
     Active Substance: URSODIOL
     Route: 048
     Dates: start: 20070201
  5. TAPROS [Concomitant]
     Active Substance: TAFLUPROST
     Dosage: BOTH EYES
     Route: 047
     Dates: start: 20110504
  6. IRESSA [Suspect]
     Active Substance: GEFITINIB
     Indication: NON-SMALL CELL LUNG CANCER RECURRENT
     Route: 048
     Dates: start: 20110401, end: 20110505
  7. NORVASC [Concomitant]
     Active Substance: AMLODIPINE BESYLATE
     Dosage: AFTER BREAKFAST
     Route: 048
     Dates: start: 20110505
  8. AZULFIDINE EN-TABS [Suspect]
     Active Substance: SULFASALAZINE
     Indication: RHEUMATOID ARTHRITIS
     Route: 048
     Dates: start: 200703
  9. PURSENNID [Concomitant]
     Active Substance: SENNOSIDES A AND B
     Route: 048
     Dates: start: 20110504

REACTIONS (3)
  - Duodenal ulcer [Recovering/Resolving]
  - Gastrointestinal haemorrhage [Recovering/Resolving]
  - Chronic gastritis [Unknown]

NARRATIVE: CASE EVENT DATE: 20110504
